FAERS Safety Report 7740692-2 (Version None)
Quarter: 2011Q3

REPORT INFORMATION
  Report Type: 
  Country: None (occurrence: None)
  Receive Date: 20110909
  Receipt Date: 20110907
  Transmission Date: 20111222
  Serious: Yes (Hospitalization)
  Sender: FDA-Public Use
  Company Number: JP-BAYER-200911900BYL

PATIENT
  Age: 52 Year
  Sex: Female

DRUGS (21)
  1. DEPAKENE [Concomitant]
     Dosage: 800 MG (DAILY DOSE), , ORAL
     Route: 048
     Dates: start: 20070611, end: 20071012
  2. RHEUMATREX [Concomitant]
     Indication: MULTIPLE SCLEROSIS
     Dosage: 4 MG (DAILY DOSE), , ORAL
     Route: 048
     Dates: start: 20070608, end: 20071112
  3. PURSENNID [Concomitant]
     Indication: CONSTIPATION
     Dosage: 12 MG (DAILY DOSE), , ORAL
     Route: 048
     Dates: start: 20070809, end: 20070830
  4. METHYCOBAL [Concomitant]
     Indication: MULTIPLE SCLEROSIS
     Dosage: 1500 ?G (DAILY DOSE), , ORAL
     Route: 048
     Dates: start: 20041126
  5. LENDORMIN [Concomitant]
     Route: 048
  6. BETASERON [Suspect]
     Indication: RELAPSING-REMITTING MULTIPLE SCLEROSIS
     Dosage: 4 MIU, QOD
     Route: 058
     Dates: start: 20041209, end: 20041213
  7. BETASERON [Suspect]
     Dosage: 8 MIU, QOD
     Route: 058
     Dates: start: 20041215, end: 20050105
  8. MEDROL [Concomitant]
     Indication: MULTIPLE SCLEROSIS
     Dosage: 4-24MG
     Route: 048
     Dates: start: 20070809, end: 20070908
  9. LOXONIN [Concomitant]
     Indication: PYREXIA
     Dosage: 60 MG (DAILY DOSE), , ORAL
     Route: 048
     Dates: start: 20070312, end: 20070505
  10. PL GRAN. [Concomitant]
     Indication: NASOPHARYNGITIS
     Dosage: 3 G (DAILY DOSE), , ORAL
     Route: 048
     Dates: start: 20070312, end: 20070505
  11. LIPITOR [Concomitant]
     Indication: HYPERLIPIDAEMIA
     Dosage: 10 MG (DAILY DOSE), , ORAL
     Route: 048
     Dates: start: 20050119
  12. ISODINE [Concomitant]
     Indication: INFECTION PROPHYLAXIS
     Dosage: 4-5TIMES/DAY
     Route: 049
     Dates: start: 20060823
  13. DEPAKENE [Concomitant]
     Indication: MULTIPLE SCLEROSIS
     Dosage: 800 MG (DAILY DOSE), , ORAL
     Route: 048
     Dates: start: 20060911, end: 20061225
  14. FAMOTIDINE [Concomitant]
     Indication: GASTRIC DISORDER
     Dosage: 10 MG (DAILY DOSE), , ORAL
     Route: 048
     Dates: start: 20070611, end: 20070705
  15. BETASERON [Suspect]
     Dosage: 4 MIU, QOD
     Route: 058
     Dates: start: 20050106, end: 20050410
  16. BETASERON [Suspect]
     Dosage: 8 MIU, QOD
     Route: 058
     Dates: start: 20050411, end: 20081029
  17. PREDNISOLONE [Concomitant]
     Indication: MULTIPLE SCLEROSIS
     Dosage: 5-30MG
     Route: 048
     Dates: start: 20070516, end: 20070705
  18. FOLIC ACID [Concomitant]
     Indication: MULTIPLE SCLEROSIS
     Dosage: 15 MG (DAILY DOSE), , ORAL
     Route: 048
     Dates: start: 20071015, end: 20071112
  19. LENDORMIN [Concomitant]
     Indication: SLEEP DISORDER
     Dosage: 0.25 MG (DAILY DOSE), , ORAL
     Route: 048
     Dates: start: 20070809, end: 20070830
  20. SOLU-MEDROL [Concomitant]
     Indication: MULTIPLE SCLEROSIS
     Dosage: 1000 MG (DAILY DOSE), , INTRAVENOUS
     Route: 042
     Dates: start: 20070513, end: 20070515
  21. LOXONIN [Concomitant]
     Route: 065

REACTIONS (15)
  - WHITE BLOOD CELL COUNT INCREASED [None]
  - ARTHRALGIA [None]
  - WHITE BLOOD CELL COUNT DECREASED [None]
  - CYSTITIS [None]
  - URINARY RETENTION [None]
  - HEPATIC FUNCTION ABNORMAL [None]
  - POLLAKIURIA [None]
  - HEADACHE [None]
  - PYREXIA [None]
  - SLEEP DISORDER [None]
  - GAIT DISTURBANCE [None]
  - PLATELET COUNT DECREASED [None]
  - MUSCULAR WEAKNESS [None]
  - DYSAESTHESIA [None]
  - CONSTIPATION [None]
